FAERS Safety Report 20279696 (Version 2)
Quarter: 2022Q1

REPORT INFORMATION
  Report Type: Spontaneous
  Country: SI (occurrence: SI)
  Receive Date: 20220103
  Receipt Date: 20220110
  Transmission Date: 20220423
  Serious: Yes (Hospitalization)
  Sender: FDA-Public Use
  Company Number: None

PATIENT
  Age: 43 Year
  Sex: Female

DRUGS (2)
  1. OCREVUS [Suspect]
     Active Substance: OCRELIZUMAB
     Indication: Primary progressive multiple sclerosis
     Dosage: 600 MG IN APRIL (H0044B15) AND 2X300 MG IN SEPTEMBER (H0044B15)
     Route: 042
     Dates: start: 20200412, end: 20210928
  2. DULOXETINE [Concomitant]
     Active Substance: DULOXETINE
     Dosage: 30 MG DAILY

REACTIONS (1)
  - Renal cell carcinoma [Not Recovered/Not Resolved]

NARRATIVE: CASE EVENT DATE: 20210630
